FAERS Safety Report 21086672 (Version 2)
Quarter: 2022Q3

REPORT INFORMATION
  Report Type: Spontaneous
  Country: US (occurrence: US)
  Receive Date: 20220715
  Receipt Date: 20220716
  Transmission Date: 20221026
  Serious: No
  Sender: FDA-Public Use
  Company Number: US-ChurchDwight-2022-CDW-00709

PATIENT
  Sex: Female

DRUGS (1)
  1. ZICAM COLD REMEDY RAPIDMELTS [Suspect]
     Active Substance: HOMEOPATHICS\ZINC ACETATE\ZINC GLUCONATE
     Indication: Nasopharyngitis
     Route: 048

REACTIONS (4)
  - Anosmia [Unknown]
  - Ageusia [Unknown]
  - Condition aggravated [Unknown]
  - Drug ineffective [Unknown]
